FAERS Safety Report 5096178-X (Version None)
Quarter: 2006Q3

REPORT INFORMATION
  Report Type: 
  Country: None (occurrence: None)
  Receive Date: 20060831
  Receipt Date: 20060619
  Transmission Date: 20061208
  Serious: Yes (Hospitalization)
  Sender: FDA-Public Use
  Company Number: 2006VX000735

PATIENT
  Age: 61 Year
  Sex: Female
  Weight: 66.2252 kg

DRUGS (1)
  1. INTERFERON ALFACON-1 [Suspect]
     Indication: HEPATITIS C
     Dosage: 15 UG;SC
     Route: 058
     Dates: start: 20050121, end: 20050414

REACTIONS (3)
  - DISEASE RECURRENCE [None]
  - HEPATITIS C [None]
  - IDIOPATHIC THROMBOCYTOPENIC PURPURA [None]
